FAERS Safety Report 7554740-6 (Version None)
Quarter: 2011Q2

REPORT INFORMATION
  Report Type: 
  Country: None (occurrence: None)
  Receive Date: 20110615
  Receipt Date: 20110615
  Transmission Date: 20111010
  Serious: No
  Sender: FDA-Public Use
  Company Number: None

PATIENT
  Age: 52 Year
  Sex: Female

DRUGS (1)
  1. CEFAZOLIN [Suspect]
     Dates: start: 20100112, end: 20100112

REACTIONS (8)
  - LIVER DISORDER [None]
  - WEIGHT DECREASED [None]
  - DECREASED APPETITE [None]
  - PRURITUS [None]
  - CHOLESTASIS [None]
  - HEPATOTOXICITY [None]
  - BLOOD CHOLESTEROL INCREASED [None]
  - RASH MACULAR [None]
